FAERS Safety Report 11876126 (Version 1)
Quarter: 2015Q4

REPORT INFORMATION
  Report Type: Spontaneous
  Country: IT (occurrence: IT)
  Receive Date: 20151229
  Receipt Date: 20151229
  Transmission Date: 20160305
  Serious: Yes (Hospitalization)
  Sender: FDA-Public Use
  Company Number: IT-SA-2015SA218315

PATIENT
  Sex: Female

DRUGS (1)
  1. ALEMTUZUMAB [Suspect]
     Active Substance: ALEMTUZUMAB
     Route: 042
     Dates: start: 20151216, end: 20151216

REACTIONS (2)
  - Hyperthermia [Unknown]
  - Hypotension [Unknown]

NARRATIVE: CASE EVENT DATE: 20151216
